FAERS Safety Report 6842645-5 (Version None)
Quarter: 2010Q3

REPORT INFORMATION
  Report Type: 
  Country: None (occurrence: None)
  Receive Date: 20100714
  Receipt Date: 20070806
  Transmission Date: 20110219
  Serious: No
  Sender: FDA-Public Use
  Company Number: US-PFIZER INC-2007065487

PATIENT
  Sex: Male
  Weight: 56.7 kg

DRUGS (4)
  1. CHANTIX [Suspect]
     Indication: SMOKING CESSATION THERAPY
     Route: 048
     Dates: start: 20070716
  2. DIPHENOXYLATE [Concomitant]
     Indication: PAIN
  3. VICODIN [Concomitant]
     Indication: PAIN
  4. ALL OTHER THERAPEUTIC PRODUCTS [Concomitant]

REACTIONS (1)
  - SLEEP DISORDER [None]
